FAERS Safety Report 26002877 (Version 1)
Quarter: 2025Q4

REPORT INFORMATION
  Report Type: Spontaneous
  Country: CA (occurrence: CA)
  Receive Date: 20251106
  Receipt Date: 20251106
  Transmission Date: 20260119
  Serious: Yes (Other)
  Sender: AUROBINDO
  Company Number: E2B_07878987

PATIENT
  Age: 68 Year
  Sex: Female

DRUGS (8)
  1. TOFACITINIB [Suspect]
     Active Substance: TOFACITINIB
     Indication: Rheumatoid arthritis
     Dosage: UNK
     Route: 065
  2. XELJANZ [Suspect]
     Active Substance: TOFACITINIB CITRATE
     Indication: Rheumatoid arthritis
     Dosage: 5 MILLIGRAM, TWO TIMES A DAY
     Route: 048
  3. BIOTIN [Concomitant]
     Active Substance: BIOTIN
     Indication: Product used for unknown indication
     Dosage: 1 DOSAGE FORM
     Route: 065
  4. COSENTYX [Concomitant]
     Active Substance: SECUKINUMAB
     Indication: Product used for unknown indication
     Dosage: TOTAL
     Route: 065
  5. GLUCOSAMINE [Concomitant]
     Active Substance: GLUCOSAMINE
     Indication: Product used for unknown indication
     Dosage: 1 DOSAGE FORM
     Route: 065
  6. LEFLUNOMIDE [Concomitant]
     Active Substance: LEFLUNOMIDE
     Indication: Product used for unknown indication
     Dosage: 20 MILLIGRAM, ONCE A DAY
     Route: 065
  7. PROBIOTICS NOS [Concomitant]
     Active Substance: PROBIOTICS NOS
     Indication: Product used for unknown indication
     Dosage: 1 DOSAGE FORM
     Route: 065
  8. VITAMIN D [Concomitant]
     Active Substance: VITAMIN D NOS
     Indication: Product used for unknown indication
     Dosage: 1 DOSAGE FORM
     Route: 065

REACTIONS (2)
  - Condition aggravated [Not Recovered/Not Resolved]
  - Breast cancer [Not Recovered/Not Resolved]
